FAERS Safety Report 18734493 (Version 1)
Quarter: 2021Q1

REPORT INFORMATION
  Report Type: Spontaneous
  Country: US (occurrence: US)
  Receive Date: 20210112
  Receipt Date: 20210112
  Transmission Date: 20210419
  Serious: Yes (Disabling)
  Sender: FDA-Public Use
  Company Number: None

PATIENT
  Age: 13 Year
  Sex: Male
  Weight: 105.75 kg

DRUGS (4)
  1. ZOLOFT [Suspect]
     Active Substance: SERTRALINE HYDROCHLORIDE
     Indication: DEPRESSION
     Dosage: ?          QUANTITY:1 CAPSULE(S);?
     Route: 048
  2. SEROQUEL XR [Concomitant]
     Active Substance: QUETIAPINE FUMARATE
  3. SINEX [Concomitant]
     Active Substance: ACETAMINOPHEN\DOXYLAMINE SUCCINATE\PHENYLEPHRINE HYDROCHLORIDE
  4. VYVANSE [Concomitant]
     Active Substance: LISDEXAMFETAMINE DIMESYLATE

REACTIONS (3)
  - Muscular weakness [None]
  - Muscle strength abnormal [None]
  - Gait disturbance [None]

NARRATIVE: CASE EVENT DATE: 20200812
